FAERS Safety Report 5148338-7 (Version None)
Quarter: 2006Q4

REPORT INFORMATION
  Report Type: 
  Country: None (occurrence: None)
  Receive Date: 20061106
  Receipt Date: 20061027
  Transmission Date: 20070319
  Serious: Yes (Death, Hospitalization, Other)
  Sender: FDA-Public Use
  Company Number: 2006132312

PATIENT
  Age: 48 Year
  Sex: Female
  Weight: 62 kg

DRUGS (2)
  1. PREDNISOLONE [Suspect]
     Dosage: 7.5 MG (7.5 MG, 1 IN 1 D)
     Dates: start: 20031201
  2. ENBREL [Suspect]
     Dosage: (25 MG, 2 IN 1 WK) SUBCUTANEOUS
     Route: 058
     Dates: start: 20030919

REACTIONS (2)
  - CEREBRAL HAEMORRHAGE [None]
  - FALL [None]
